FAERS Safety Report 10067669 (Version 2)
Quarter: 2014Q2

REPORT INFORMATION
  Report Type: Spontaneous
  Country: US (occurrence: US)
  Receive Date: 20140409
  Receipt Date: 20140520
  Transmission Date: 20141212
  Serious: Yes (Other)
  Sender: FDA-Public Use
  Company Number: US-SA-2014SA043897

PATIENT
  Age: 43 Year
  Sex: Male

DRUGS (5)
  1. CEREZYME [Suspect]
     Indication: GAUCHER^S DISEASE
     Dosage: DOSE : 60 UNITS/KG?TOTAL DOSE: 4800 UNITS ALTERNATIVE WITH 5200 UNITS EVERY 2 WEEKS
     Route: 042
     Dates: start: 20130214
  2. METFORMIN [Concomitant]
  3. COREG [Concomitant]
  4. LISINOPRIL [Concomitant]
  5. LEVOCETIRIZINE [Concomitant]

REACTIONS (1)
  - Treatment failure [Not Recovered/Not Resolved]
